FAERS Safety Report 4753583-6 (Version None)
Quarter: 2005Q3

REPORT INFORMATION
  Report Type: 
  Country: None (occurrence: None)
  Receive Date: 20050826
  Receipt Date: 20050524
  Transmission Date: 20060218
  Serious: Yes (Life-Threatening)
  Sender: FDA-Public Use
  Company Number: FR-JNJFOC-20050506454

PATIENT
  Age: 77 Year
  Sex: Male

DRUGS (11)
  1. REMINYL [Suspect]
     Route: 048
  2. REMINYL [Suspect]
     Route: 048
  3. CORTANCYL [Concomitant]
     Indication: POLYARTHRITIS
  4. ZOPICLONE [Concomitant]
     Indication: INSOMNIA
  5. OMEPRAZOLE [Concomitant]
  6. CALPEROS [Concomitant]
     Indication: OSTEOPOROSIS PROPHYLAXIS
     Dosage: 2 TABLETS DAILY
  7. PROPOFOL [Concomitant]
  8. PROPOFOL [Concomitant]
  9. PROPOFOL [Concomitant]
  10. PROPOFOL [Concomitant]
  11. PROPOFOL [Concomitant]
     Indication: PAIN
     Dosage: 4 TABLETS DAILY

REACTIONS (4)
  - ACUTE MYELOID LEUKAEMIA [None]
  - ANAEMIA [None]
  - MYELODYSPLASTIC SYNDROME [None]
  - THROMBOCYTOPENIA [None]
